FAERS Safety Report 6963767-4 (Version None)
Quarter: 2010Q3

REPORT INFORMATION
  Report Type: 
  Country: None (occurrence: None)
  Receive Date: 20100902
  Receipt Date: 20100824
  Transmission Date: 20110219
  Serious: Yes (Hospitalization, Other)
  Sender: FDA-Public Use
  Company Number: US-ROCHE-723759

PATIENT

DRUGS (16)
  1. BEVACIZUMAB [Suspect]
     Dosage: ROUTE: IVPB.
     Route: 042
     Dates: start: 20100623, end: 20100728
  2. CISPLATIN [Suspect]
     Dosage: ROUTE: IVPB.
     Route: 042
     Dates: start: 20100623, end: 20100728
  3. TOPOTECAN [Suspect]
     Dosage: DOSAGE: 0.75 MG/M2 X 3 DAYS.
     Route: 042
     Dates: start: 20100623, end: 20100728
  4. HYDROCHLOROTHIAZIDE [Concomitant]
  5. PAXIL [Concomitant]
  6. RELAFEN [Concomitant]
  7. ZOCOR [Concomitant]
  8. VERAPAMIL [Concomitant]
  9. ASPIRIN [Concomitant]
  10. NEXIUM [Concomitant]
     Dosage: DRUG REPORTED AS NEXIUM 20.
  11. PAXIL [Concomitant]
     Dosage: DRUG REPORTED AS PAXIL 40.
  12. SENNA [Concomitant]
  13. MIRALAX [Concomitant]
  14. TOPROL-XL [Concomitant]
  15. ATIVAN [Concomitant]
     Dosage: FREQUENCY: EVERY SIX HOURS AS NEEDED.
     Route: 042
  16. PERCOCET [Concomitant]
     Dosage: FREQUENCY: ONE TO TWO TABLETS EVERY FOUR HOURS AS NEEDED.

REACTIONS (8)
  - ATRIAL FIBRILLATION [None]
  - DIARRHOEA [None]
  - DISEASE PROGRESSION [None]
  - DRUG TOXICITY [None]
  - HAEMOGLOBIN DECREASED [None]
  - NAUSEA [None]
  - PLATELET COUNT DECREASED [None]
  - VOMITING [None]
